FAERS Safety Report 6083794-1 (Version None)
Quarter: 2009Q1

REPORT INFORMATION
  Report Type: 
  Country: None (occurrence: None)
  Receive Date: 20090217
  Receipt Date: 20090217
  Transmission Date: 20090719
  Serious: Yes (Other)
  Sender: FDA-Public Use
  Company Number: None

PATIENT
  Age: 44 Year
  Sex: Female
  Weight: 90.7194 kg

DRUGS (1)
  1. CARBIDOPA AND LEVODOPA [Suspect]
     Indication: PARKINSON'S DISEASE
     Dosage: 50/200 CR FIVE PO QD
     Route: 048
     Dates: start: 20030501, end: 20030801

REACTIONS (4)
  - DRUG EFFECT DECREASED [None]
  - FREEZING PHENOMENON [None]
  - MOBILITY DECREASED [None]
  - PRODUCT QUALITY ISSUE [None]
